FAERS Safety Report 6598230-6 (Version None)
Quarter: 2010Q1

REPORT INFORMATION
  Report Type: 
  Country: None (occurrence: None)
  Receive Date: 20100224
  Receipt Date: 20050304
  Transmission Date: 20100710
  Serious: No
  Sender: FDA-Public Use
  Company Number: US-ALLERGAN-200502646

PATIENT
  Age: 64 Year
  Sex: Female
  Weight: 49.545 kg

DRUGS (1)
  1. BOTOX COSMETIC [Suspect]
     Indication: SKIN WRINKLING
     Route: 030
     Dates: start: 20050222, end: 20050222

REACTIONS (2)
  - DROOLING [None]
  - MUSCULAR WEAKNESS [None]
